FAERS Safety Report 9027153 (Version 2)
Quarter: 2013Q1

REPORT INFORMATION
  Report Type: Spontaneous
  Country: US (occurrence: US)
  Receive Date: 20130123
  Receipt Date: 20130227
  Transmission Date: 20140127
  Serious: Yes (Hospitalization)
  Sender: FDA-Public Use
  Company Number: US-GLAXOSMITHKLINE-A0897026A

PATIENT
  Age: 57 Year
  Sex: Male
  Weight: 110.9 kg

DRUGS (9)
  1. AVANDIA [Suspect]
     Indication: TYPE 2 DIABETES MELLITUS
     Dosage: 8MG PER DAY
     Route: 048
     Dates: start: 20030717, end: 20070702
  2. TRAZODONE [Concomitant]
  3. ZOCOR [Concomitant]
  4. CLONAZEPAM [Concomitant]
  5. TRENTAL [Concomitant]
  6. ZETIA [Concomitant]
  7. DIOVAN HCT [Concomitant]
  8. PRILOSEC [Concomitant]
  9. CELEXA [Concomitant]

REACTIONS (3)
  - Cerebrovascular accident [Not Recovered/Not Resolved]
  - Myocardial ischaemia [Unknown]
  - Angina pectoris [Unknown]
